FAERS Safety Report 19031744 (Version 2)
Quarter: 2022Q2

REPORT INFORMATION
  Report Type: Report from Study
  Country: FR (occurrence: FR)
  Receive Date: 20210319
  Receipt Date: 20220419
  Transmission Date: 20220721
  Serious: Yes (Hospitalization)
  Sender: FDA-Public Use
  Company Number: FR-PFIZER INC-2021257633

PATIENT
  Age: 31 Year
  Sex: Female
  Weight: 60 kg

DRUGS (2)
  1. TALAZOPARIB [Suspect]
     Active Substance: TALAZOPARIB
     Indication: Breast cancer
     Dosage: 1 MG, DAILY
     Route: 048
     Dates: start: 20210115, end: 20210303
  2. TALAZOPARIB [Suspect]
     Active Substance: TALAZOPARIB
     Dosage: 0.75 MG, DAILY
     Dates: start: 20210317

REACTIONS (3)
  - Intermenstrual bleeding [Recovering/Resolving]
  - Thrombocytopenia [Recovering/Resolving]
  - Anaemia [Recovered/Resolved]

NARRATIVE: CASE EVENT DATE: 20210304
